FAERS Safety Report 6403288-0 (Version None)
Quarter: 2009Q4

REPORT INFORMATION
  Report Type: 
  Country: None (occurrence: None)
  Receive Date: 20091016
  Receipt Date: 20091009
  Transmission Date: 20100525
  Serious: Yes (Other)
  Sender: FDA-Public Use
  Company Number: BR-JNJFOC-20091003444

PATIENT
  Age: 24 Year
  Sex: Female
  Weight: 50 kg

DRUGS (1)
  1. ORTHO EVRA [Suspect]
     Indication: POLYCYSTIC OVARIES
     Dosage: ETHINYL ESTRADIOL 0.6 MG/ NORELGESTROMIN 6 MG
     Route: 062
     Dates: start: 20090601, end: 20091009

REACTIONS (6)
  - APPLICATION SITE BURN [None]
  - HAEMOGLOBIN DECREASED [None]
  - METRORRHAGIA [None]
  - OFF LABEL USE [None]
  - PRODUCT QUALITY ISSUE [None]
  - SKIN HYPERPIGMENTATION [None]
